FAERS Safety Report 18617673 (Version 1)
Quarter: 2020Q4

REPORT INFORMATION
  Report Type: Spontaneous
  Country: IT (occurrence: IT)
  Receive Date: 20201215
  Receipt Date: 20201215
  Transmission Date: 20210114
  Serious: Yes (Hospitalization)
  Sender: FDA-Public Use
  Company Number: IT-ROCHE-2732555

PATIENT
  Age: 31 Year
  Sex: Male

DRUGS (6)
  1. RIVOTRIL [Suspect]
     Active Substance: CLONAZEPAM
     Indication: PANIC ATTACK
     Route: 048
     Dates: start: 20190923, end: 20190923
  2. LASIX [Suspect]
     Active Substance: FUROSEMIDE
     Indication: DRUG ABUSE
     Route: 048
     Dates: start: 20190923, end: 20190923
  3. TEGRETOL [Suspect]
     Active Substance: CARBAMAZEPINE
     Indication: GENERALISED TONIC-CLONIC SEIZURE
     Route: 048
     Dates: start: 20190923, end: 20190923
  4. LORAZEPAM. [Suspect]
     Active Substance: LORAZEPAM
     Indication: ANXIETY
     Route: 048
     Dates: start: 20190923, end: 20190923
  5. COUMADIN [Suspect]
     Active Substance: WARFARIN SODIUM
     Indication: DRUG ABUSE
     Route: 048
     Dates: start: 20190923, end: 20190923
  6. LUVION [CANRENONE] [Suspect]
     Active Substance: CANRENONE
     Indication: DRUG ABUSE
     Route: 048
     Dates: start: 20190923, end: 20190923

REACTIONS (5)
  - International normalised ratio increased [Recovering/Resolving]
  - Sopor [Recovering/Resolving]
  - Poverty of speech [Recovering/Resolving]
  - Drug abuse [Recovering/Resolving]
  - Renal impairment [Recovering/Resolving]

NARRATIVE: CASE EVENT DATE: 20190923
